FAERS Safety Report 7996037-6 (Version None)
Quarter: 2011Q4

REPORT INFORMATION
  Report Type: 
  Country: None (occurrence: None)
  Receive Date: 20111220
  Receipt Date: 20111208
  Transmission Date: 20120403
  Serious: Yes (Hospitalization, Other)
  Sender: FDA-Public Use
  Company Number: PHHY2011BR098554

PATIENT
  Sex: Male

DRUGS (7)
  1. METFORMIN HCL [Concomitant]
     Dosage: 850 MG, DAILY
  2. SOMALGIN [Concomitant]
     Dosage: 100 MG, UNK
  3. PROPAFENONE HCL [Concomitant]
     Dosage: UNK UKN, UNK
  4. MAGNESIUM PIDOLATE [Concomitant]
     Dosage: 10 MG, DAILY
  5. EXELON [Suspect]
     Indication: ARRHYTHMIA
     Dosage: 9MG/5CM2, ONE PATCH A DAY
     Route: 062
     Dates: start: 20100101
  6. ATORVASTATIN CALCIUM [Concomitant]
  7. ATENOLOL [Concomitant]
     Dosage: 850 MG, UNK

REACTIONS (2)
  - ISCHAEMIC STROKE [None]
  - CEREBROVASCULAR ACCIDENT [None]
